FAERS Safety Report 6077796-9 (Version None)
Quarter: 2009Q1

REPORT INFORMATION
  Report Type: 
  Country: None (occurrence: None)
  Receive Date: 20090213
  Receipt Date: 20090203
  Transmission Date: 20090719
  Serious: Yes (Other)
  Sender: FDA-Public Use
  Company Number: DE-PFIZER INC-2009164521

PATIENT

DRUGS (5)
  1. LONOLOX [Suspect]
     Dosage: 20 MG, 3X/DAY
     Dates: start: 20080705, end: 20080818
  2. ALISKIREN [Suspect]
     Dosage: 150 MG, 1X/DAY
     Dates: start: 20080704
  3. LERCANIDIPINE HYDROCHLORIDE [Concomitant]
     Dosage: UNK
     Dates: start: 20080313
  4. ENALAPRIL MALEATE [Concomitant]
     Dosage: UNK
     Dates: start: 20080313
  5. BISOPROLOL [Concomitant]
     Dosage: UNK
     Dates: start: 20080508

REACTIONS (2)
  - ANGIOEDEMA [None]
  - OEDEMA [None]
